FAERS Safety Report 6254515-4 (Version None)
Quarter: 2009Q3

REPORT INFORMATION
  Report Type: 
  Country: None (occurrence: None)
  Receive Date: 20090702
  Receipt Date: 20090626
  Transmission Date: 20100115
  Serious: Yes (Hospitalization)
  Sender: FDA-Public Use
  Company Number: GR-BRISTOL-MYERS SQUIBB COMPANY-14684096

PATIENT
  Age: 46 Year
  Sex: Female

DRUGS (1)
  1. MITOMYCIN [Suspect]
     Indication: PTERYGIUM
     Dosage: FORM = INJ
     Route: 031

REACTIONS (3)
  - ENDOPHTHALMITIS [None]
  - KERATITIS FUNGAL [None]
  - SCLERAL THINNING [None]
